FAERS Safety Report 5051388-2 (Version None)
Quarter: 2006Q3

REPORT INFORMATION
  Report Type: 
  Country: None (occurrence: None)
  Receive Date: 20060714
  Receipt Date: 20060515
  Transmission Date: 20061208
  Serious: Yes (Other)
  Sender: FDA-Public Use
  Company Number: BR-ABBOTT-06P-020-0333403-00

PATIENT
  Age: 43 Year
  Sex: Female
  Weight: 63 kg

DRUGS (3)
  1. KLARICID UD [Suspect]
     Indication: ACUTE TONSILLITIS
     Route: 048
     Dates: start: 20060510, end: 20060512
  2. ATENOLOL [Concomitant]
     Indication: HYPERTENSION
     Route: 048
  3. QUETIAPINE FUMARATE [Concomitant]
     Indication: AFFECTIVE DISORDER
     Route: 048

REACTIONS (5)
  - BURNING SENSATION [None]
  - DYSPNOEA [None]
  - HYPERSENSITIVITY [None]
  - SKIN BURNING SENSATION [None]
  - THROAT TIGHTNESS [None]
